FAERS Safety Report 9643377 (Version 2)
Quarter: 2013Q4

REPORT INFORMATION
  Report Type: Report from Study
  Country: BR (occurrence: BR)
  Receive Date: 20131024
  Receipt Date: 20131024
  Transmission Date: 20140711
  Serious: Yes (Other)
  Sender: FDA-Public Use
  Company Number: BR-ABBVIE-13P-020-1071582-00

PATIENT
  Sex: Female
  Weight: 113 kg

DRUGS (10)
  1. HUMIRA [Suspect]
     Indication: ANKYLOSING SPONDYLITIS
     Route: 058
     Dates: start: 20120401, end: 20130629
  2. HUMIRA [Suspect]
     Route: 058
     Dates: start: 20130720
  3. VIMOVO [Concomitant]
     Indication: PAIN
     Route: 048
     Dates: start: 2012
  4. ATENOLOL [Concomitant]
     Indication: HYPERTENSION
     Route: 048
     Dates: start: 201306
  5. METHOTREXATE [Concomitant]
     Indication: RHEUMATIC DISORDER
     Dosage: ON SATURDAYS
     Route: 048
     Dates: start: 2010
  6. MAX D3 [Concomitant]
     Indication: VITAMIN SUPPLEMENTATION
     Route: 048
     Dates: start: 201302
  7. FOLIC ACID [Concomitant]
     Indication: RHEUMATIC DISORDER
     Route: 048
     Dates: start: 2010
  8. LOSARTAN [Concomitant]
     Indication: HYPERTENSION
     Route: 048
     Dates: start: 2012
  9. HYDROCHLOROTHIAZIDE [Concomitant]
     Indication: HYPERTENSION
     Route: 048
     Dates: start: 201302
  10. CLUSIVOL [Concomitant]
     Indication: VITAMIN SUPPLEMENTATION
     Dosage: IN THE MORNING AND IN THE EVENING
     Route: 048

REACTIONS (5)
  - Obesity [Unknown]
  - Therapeutic response unexpected [Recovered/Resolved]
  - Weight increased [Not Recovered/Not Resolved]
  - Acne [Recovered/Resolved]
  - Hypertension [Recovered/Resolved]
